FAERS Safety Report 7490626-3 (Version None)
Quarter: 2011Q2

REPORT INFORMATION
  Report Type: 
  Country: None (occurrence: None)
  Receive Date: 20110519
  Receipt Date: 20110511
  Transmission Date: 20111010
  Serious: Yes (Life-Threatening, Hospitalization, Other)
  Sender: FDA-Public Use
  Company Number: DE-TEVA-281229GER

PATIENT
  Age: 22 Year
  Sex: Male
  Weight: 60 kg

DRUGS (3)
  1. CEFUROXIME [Suspect]
     Dosage: 1000 MILLIGRAM;
     Route: 048
     Dates: start: 20101126, end: 20101130
  2. CYCLOSPORINE [Suspect]
     Indication: BONE MARROW TRANSPLANT
     Dosage: 150 MILLIGRAM;
     Route: 048
     Dates: start: 20101128
  3. CYCLOSPORINE [Suspect]
     Dosage: 175 MILLIGRAM;
     Route: 042

REACTIONS (1)
  - RENAL FAILURE ACUTE [None]
